FAERS Safety Report 19002502 (Version 1)
Quarter: 2021Q1

REPORT INFORMATION
  Report Type: Spontaneous
  Country: US (occurrence: US)
  Receive Date: 20210312
  Receipt Date: 20210312
  Transmission Date: 20210420
  Serious: Yes (Other)
  Sender: FDA-Public Use
  Company Number: US-GYP-000283

PATIENT
  Age: 77 Year

DRUGS (5)
  1. PREDNISONE. [Suspect]
     Active Substance: PREDNISONE
     Indication: MICROSCOPIC POLYANGIITIS
     Route: 065
  2. PREDNISONE. [Suspect]
     Active Substance: PREDNISONE
     Indication: MICROSCOPIC POLYANGIITIS
     Route: 065
  3. PREDNISONE. [Suspect]
     Active Substance: PREDNISONE
     Indication: MICROSCOPIC POLYANGIITIS
     Route: 065
  4. CYCLOPHOSPHAMIDE. [Suspect]
     Active Substance: CYCLOPHOSPHAMIDE
     Indication: MICROSCOPIC POLYANGIITIS
     Route: 065
  5. PREDNISONE. [Suspect]
     Active Substance: PREDNISONE
     Indication: MICROSCOPIC POLYANGIITIS
     Route: 065

REACTIONS (7)
  - Drug ineffective [Unknown]
  - Urosepsis [Recovered/Resolved]
  - Product use in unapproved indication [Unknown]
  - Escherichia bacteraemia [Recovered/Resolved]
  - Human herpesvirus 8 infection [Recovered/Resolved]
  - Clostridium difficile colitis [Recovered/Resolved]
  - Kaposi^s sarcoma [Recovered/Resolved]
